FAERS Safety Report 10962022 (Version 4)
Quarter: 2015Q3

REPORT INFORMATION
  Report Type: Spontaneous
  Country: US (occurrence: US)
  Receive Date: 20150327
  Receipt Date: 20150828
  Transmission Date: 20151125
  Serious: Yes (Hospitalization, Other)
  Sender: FDA-Public Use
  Company Number: US-GLAXOSMITHKLINE-US2015GSK040870

PATIENT
  Age: 67 Year
  Sex: Male
  Weight: 72.56 kg

DRUGS (19)
  1. MEKINIST [Suspect]
     Active Substance: TRAMETINIB DIMETHYL SULFOXIDE
     Dosage: 1 MG, UNK
     Route: 048
  2. VORICONAZOLE. [Concomitant]
     Active Substance: VORICONAZOLE
  3. PANTOPRAZOLE [Concomitant]
     Active Substance: PANTOPRAZOLE SODIUM
  4. MELATONIN [Concomitant]
     Active Substance: MELATONIN
  5. DEXAMETHASONE. [Concomitant]
     Active Substance: DEXAMETHASONE
  6. THALOMID [Concomitant]
     Active Substance: THALIDOMIDE
  7. ZELBORAF [Concomitant]
     Active Substance: VEMURAFENIB
  8. OXYCODONE [Concomitant]
     Active Substance: OXYCODONE
  9. OXYCONTIN [Concomitant]
     Active Substance: OXYCODONE HYDROCHLORIDE
  10. GANCICLOVIR. [Concomitant]
     Active Substance: GANCICLOVIR
  11. ACYCLOVIR. [Concomitant]
     Active Substance: ACYCLOVIR
  12. K-DUR [Concomitant]
     Active Substance: POTASSIUM CHLORIDE
  13. LORAZEPAM. [Concomitant]
     Active Substance: LORAZEPAM
  14. MEKINIST [Suspect]
     Active Substance: TRAMETINIB DIMETHYL SULFOXIDE
     Indication: PLASMA CELL MYELOMA
     Dosage: 1 MG, QD
     Route: 048
     Dates: start: 20130812
  15. CYTOXAN [Suspect]
     Active Substance: CYCLOPHOSPHAMIDE
     Indication: PRODUCT USED FOR UNKNOWN INDICATION
  16. TURMERIC [Concomitant]
     Active Substance: TURMERIC
  17. AMBIEN [Concomitant]
     Active Substance: ZOLPIDEM TARTRATE
  18. CIALIS [Concomitant]
     Active Substance: TADALAFIL
  19. UROXATRAL [Concomitant]
     Active Substance: ALFUZOSIN HYDROCHLORIDE

REACTIONS (10)
  - Tachycardia [Recovering/Resolving]
  - Blood calcium increased [Recovering/Resolving]
  - Asthenia [Recovering/Resolving]
  - Renal impairment [Recovering/Resolving]
  - Haemoglobin decreased [Recovering/Resolving]
  - Anaemia [Recovering/Resolving]
  - Dehydration [Recovering/Resolving]
  - Central nervous system lesion [Unknown]
  - Pyrexia [Recovering/Resolving]
  - Platelet count decreased [Recovering/Resolving]

NARRATIVE: CASE EVENT DATE: 20150520
